FAERS Safety Report 18126281 (Version 1)
Quarter: 2020Q3

REPORT INFORMATION
  Report Type: Spontaneous
  Country: GB (occurrence: GB)
  Receive Date: 20200808
  Receipt Date: 20200808
  Transmission Date: 20201103
  Serious: Yes (Other)
  Sender: FDA-Public Use
  Company Number: GB-DRREDDYS-GER/UKI/20/0125711

PATIENT
  Age: 70 Year
  Sex: Female

DRUGS (1)
  1. OMEPRAZOLE 20MG CAPSULES, DR. REDDY^S [Suspect]
     Active Substance: OMEPRAZOLE
     Indication: GASTROOESOPHAGEAL REFLUX DISEASE
     Route: 048
     Dates: start: 20200626, end: 20200718

REACTIONS (1)
  - Drug ineffective [Not Recovered/Not Resolved]
